FAERS Safety Report 6330341-2 (Version None)
Quarter: 2009Q3

REPORT INFORMATION
  Report Type: 
  Country: None (occurrence: None)
  Receive Date: 20090827
  Receipt Date: 20070911
  Transmission Date: 20100115
  Serious: Yes (Other)
  Sender: FDA-Public Use
  Company Number: US-ASTRAZENECA-2006UW27479

PATIENT
  Age: 43 Year
  Sex: Female

DRUGS (16)
  1. SEROQUEL [Suspect]
     Indication: INSOMNIA
     Route: 048
     Dates: start: 20040101
  2. SEROQUEL [Suspect]
     Indication: BIPOLAR DISORDER
     Route: 048
     Dates: start: 20040101
  3. SEROQUEL [Suspect]
     Indication: ANXIETY
     Route: 048
     Dates: start: 20040101
  4. SEROQUEL [Suspect]
     Indication: AFFECTIVE DISORDER
     Route: 048
     Dates: start: 20040101
  5. SEROQUEL [Suspect]
     Dosage: 50 MG - 300 MG
     Route: 048
     Dates: start: 20040114
  6. SEROQUEL [Suspect]
     Dosage: 50 MG - 300 MG
     Route: 048
     Dates: start: 20040114
  7. SEROQUEL [Suspect]
     Dosage: 50 MG - 300 MG
     Route: 048
     Dates: start: 20040114
  8. SEROQUEL [Suspect]
     Dosage: 50 MG - 300 MG
     Route: 048
     Dates: start: 20040114
  9. RISPERDAL [Concomitant]
     Dosage: 0.5 MG - 1 MG
     Dates: start: 20050331
  10. VISTORIL [Concomitant]
     Dates: start: 20070110
  11. KLONOPIN [Concomitant]
     Dates: start: 20050804
  12. LEXAPRO [Concomitant]
     Indication: ANXIETY
     Dates: start: 20050802
  13. LEXAPRO [Concomitant]
     Indication: DEPRESSION
     Dates: start: 20050802
  14. LEXAPRO [Concomitant]
     Indication: OBSESSIVE-COMPULSIVE DISORDER
     Dates: start: 20050802
  15. VALIUM [Concomitant]
     Dates: start: 20080227
  16. LUNESTA [Concomitant]
     Dates: start: 20061114

REACTIONS (3)
  - DIABETES MELLITUS [None]
  - GLUCOSE TOLERANCE IMPAIRED [None]
  - NEUROPATHY PERIPHERAL [None]
